FAERS Safety Report 13277144 (Version 1)
Quarter: 2017Q1

REPORT INFORMATION
  Report Type: Spontaneous
  Country: US (occurrence: US)
  Receive Date: 20170228
  Receipt Date: 20170228
  Transmission Date: 20170428
  Serious: No
  Sender: FDA-Public Use
  Company Number: US-ASTRAZENECA-2017SE18416

PATIENT
  Sex: Female

DRUGS (1)
  1. SEROQUEL [Suspect]
     Active Substance: QUETIAPINE FUMARATE
     Dosage: UNKNOWN
     Route: 048

REACTIONS (5)
  - Post-traumatic stress disorder [Unknown]
  - Panic attack [Unknown]
  - Bipolar disorder [Unknown]
  - Drug dispensing error [Unknown]
  - Drug administration error [Unknown]
